FAERS Safety Report 8647443 (Version 3)
Quarter: 2013Q1

REPORT INFORMATION
  Report Type: Not Available
  Country: FR (occurrence: FR)
  Receive Date: 20120703
  Receipt Date: 20130115
  Transmission Date: 20140127
  Serious: Yes (Life-Threatening, Other)
  Sender: FDA-Public Use
  Company Number: FR-ASTELLAS-2012EU004655

PATIENT
  Sex: Female

DRUGS (1)
  1. PROTOPIC [Suspect]
     Indication: VITILIGO
     Dosage: 1 DF, BID
     Route: 061
     Dates: start: 200812, end: 200902

REACTIONS (2)
  - Off label use [Unknown]
  - Squamous cell carcinoma [Recovered/Resolved]
